FAERS Safety Report 9460077 (Version 1)
Quarter: 2013Q3

REPORT INFORMATION
  Report Type: Spontaneous
  Country: US (occurrence: None)
  Receive Date: 20130814
  Receipt Date: 20130814
  Transmission Date: 20140515
  Serious: Yes (Other)
  Sender: FDA-Public Use
  Company Number: None

PATIENT
  Age: 72 Year
  Sex: Female

DRUGS (11)
  1. FORTEO [Suspect]
     Indication: OSTEOARTHRITIS
     Route: 058
     Dates: start: 20130723, end: 20130807
  2. METHYPREDNISONE [Concomitant]
  3. TRAMADOL [Concomitant]
  4. LEVOXYL [Concomitant]
  5. AMLODIPINE [Concomitant]
  6. ASPIRIN [Concomitant]
  7. CALTRATE [Concomitant]
  8. MULTI VITAMIN [Concomitant]
  9. MULTI BITAMIN [Concomitant]
  10. VIT D3 [Concomitant]
  11. VIT C [Concomitant]

REACTIONS (2)
  - Muscle spasms [None]
  - Chest pain [None]
